FAERS Safety Report 6764235-5 (Version None)
Quarter: 2010Q2

REPORT INFORMATION
  Report Type: 
  Country: None (occurrence: None)
  Receive Date: 20100610
  Receipt Date: 20100604
  Transmission Date: 20101027
  Serious: Yes (Hospitalization, Other)
  Sender: FDA-Public Use
  Company Number: GB-ASTRAZENECA-2010SE26148

PATIENT
  Age: 36 Year
  Sex: Male

DRUGS (6)
  1. SEROQUEL [Suspect]
     Dosage: 50 MG IN THE MORNING AND 150 MG IN THE EVENING
     Route: 048
  2. VALPROATE SODIUM [Concomitant]
  3. TINZAPARIN [Concomitant]
     Dosage: 300,000
     Route: 058
  4. AMISULPRIDE [Concomitant]
  5. PREGABALIN [Concomitant]
  6. CLONAZEPAM [Concomitant]

REACTIONS (3)
  - RENAL FAILURE [None]
  - SOMNOLENCE [None]
  - URETHROTOMY [None]
